FAERS Safety Report 12602068 (Version 2)
Quarter: 2016Q4

REPORT INFORMATION
  Report Type: Spontaneous
  Country: US (occurrence: US)
  Receive Date: 20160728
  Receipt Date: 20161020
  Transmission Date: 20170207
  Serious: No
  Sender: FDA-Public Use
  Company Number: US-PFIZER INC-2016346463

PATIENT
  Age: 72 Year
  Sex: Female

DRUGS (2)
  1. IBRANCE [Suspect]
     Active Substance: PALBOCICLIB
     Dosage: 125 MG, UNK
     Dates: start: 20151215, end: 20161004
  2. FASLODEX [Suspect]
     Active Substance: FULVESTRANT

REACTIONS (3)
  - Fatigue [Unknown]
  - Sleep disorder [Unknown]
  - Alopecia [Unknown]
